FAERS Safety Report 13423018 (Version 1)
Quarter: 2017Q2

REPORT INFORMATION
  Report Type: Spontaneous
  Country: US (occurrence: US)
  Receive Date: 20170410
  Receipt Date: 20170410
  Transmission Date: 20170830
  Serious: No
  Sender: FDA-Public Use
  Company Number: US-MISSION PHARMACAL COMPANY-1065202

PATIENT
  Age: 63 Year
  Sex: Male

DRUGS (2)
  1. THIOLA [Suspect]
     Active Substance: TIOPRONIN
     Indication: CYSTINURIA
     Route: 065
     Dates: start: 20160222
  2. BRILINTA [Concomitant]
     Active Substance: TICAGRELOR
     Route: 065

REACTIONS (1)
  - Blood urine present [Unknown]
